FAERS Safety Report 5210315-5 (Version None)
Quarter: 2007Q1

REPORT INFORMATION
  Report Type: 
  Country: None (occurrence: None)
  Receive Date: 20070111
  Receipt Date: 20070105
  Transmission Date: 20070707
  Serious: Yes (Death, Life-Threatening)
  Sender: FDA-Public Use
  Company Number: HQWYE380105DEC06

PATIENT
  Age: 83 Year
  Sex: Male

DRUGS (8)
  1. GEMTUZUMAB OZOGAMICIN (GEMUTZUMAB OZOGAMICIN, INJECTION) [Suspect]
     Indication: ACUTE MYELOID LEUKAEMIA
     Dosage: 5 MG; SEE IMAGE
     Route: 042
     Dates: start: 20061118, end: 20061118
  2. GEMTUZUMAB OZOGAMICIN (GEMUTZUMAB OZOGAMICIN, INJECTION) [Suspect]
     Indication: ACUTE MYELOID LEUKAEMIA
     Dosage: 5 MG; SEE IMAGE
     Route: 042
     Dates: start: 20061125, end: 20061125
  3. GLAZIDIM (CEFTAZIDIME) [Concomitant]
  4. TRIDECANAMINE (TRIDECANAMINE) [Concomitant]
  5. LEVOFLOXACIN [Concomitant]
  6. VORICONAZOLE (VORICONAZOLE) [Concomitant]
  7. MEROPENEM (MEROPENEM) [Concomitant]
  8. CYTARABINE [Concomitant]

REACTIONS (6)
  - BLOOD LACTATE DEHYDROGENASE INCREASED [None]
  - COLITIS ISCHAEMIC [None]
  - DISEASE PROGRESSION [None]
  - INFECTION [None]
  - INTESTINAL HAEMORRHAGE [None]
  - RESPIRATORY DISTRESS [None]
